FAERS Safety Report 6044469-8 (Version None)
Quarter: 2009Q1

REPORT INFORMATION
  Report Type: 
  Country: None (occurrence: None)
  Receive Date: 20090115
  Receipt Date: 20090115
  Transmission Date: 20090719
  Serious: Yes (Hospitalization, Disabling)
  Sender: FDA-Public Use
  Company Number: None

PATIENT
  Age: 48 Year
  Sex: Female
  Weight: 70.3075 kg

DRUGS (1)
  1. LEVAQUIN [Suspect]
     Indication: POST PROCEDURAL INFECTION
     Dosage: 10 1 A DAY PO
     Route: 048
     Dates: start: 20080930, end: 20081005

REACTIONS (7)
  - ARTHRALGIA [None]
  - ARTHROPATHY [None]
  - DRUG INEFFECTIVE [None]
  - GAIT DISTURBANCE [None]
  - MOVEMENT DISORDER [None]
  - PAIN IN JAW [None]
  - TRIGGER FINGER [None]
